FAERS Safety Report 12250057 (Version 8)
Quarter: 2016Q4

REPORT INFORMATION
  Report Type: Spontaneous
  Country: US (occurrence: US)
  Receive Date: 20160408
  Receipt Date: 20161031
  Transmission Date: 20170207
  Serious: Yes (Hospitalization)
  Sender: FDA-Public Use
  Company Number: US-PFIZER INC-2016198421

PATIENT
  Age: 37 Year
  Sex: Male

DRUGS (2)
  1. XYNTHA [Suspect]
     Active Substance: ANTIHEMOPHILIC FACTOR, HUMAN RECOMBINANT RESIDUES 743-1636 DELETED
     Indication: HAEMOPHILIA
     Dosage: 3000 IU, WEEKLY (Q WEEKLY)
     Route: 042
     Dates: start: 20140520
  2. XYNTHA [Suspect]
     Active Substance: ANTIHEMOPHILIC FACTOR, HUMAN RECOMBINANT RESIDUES 743-1636 DELETED
     Dosage: 1800 IU, AS NEEDED
     Route: 042
     Dates: start: 20140520

REACTIONS (4)
  - Obstruction gastric [Unknown]
  - Pyrexia [Unknown]
  - Platelet count decreased [Unknown]
  - Subdural haematoma [Unknown]
